FAERS Safety Report 17878529 (Version 1)
Quarter: 2020Q2

REPORT INFORMATION
  Report Type: Spontaneous
  Country: ES (occurrence: ES)
  Receive Date: 20200610
  Receipt Date: 20200610
  Transmission Date: 20200714
  Serious: Yes (Hospitalization)
  Sender: FDA-Public Use
  Company Number: ES-TEVA-2020-ES-1245803

PATIENT
  Age: 82 Year
  Sex: Male

DRUGS (7)
  1. ESCITALOPRAM RATIO 10 MG COMPRIMIDOS RECUBIERTOS CON PELICULA EFG , 28 [Suspect]
     Active Substance: ESCITALOPRAM OXALATE
     Indication: BIPOLAR DISORDER
     Dosage: 5 MILLIGRAM DAILY; 5 MG BREAKFAST
     Route: 065
     Dates: start: 20190909, end: 20200522
  2. PANTOPRAZOL STADA 20 MG COMPRIMIDOS GASTRORRESISTENTES EFG , 28 COMPRI [Concomitant]
     Indication: GASTRITIS PROPHYLAXIS
     Dosage: 20 MILLIGRAM DAILY; 20 MG. IN THE MORNING
     Dates: start: 20130501
  3. METFORMINA CINFA 850 MG COMPRIMIDOS RECUBIERTOS CON PELICULA EFG, 50 C [Concomitant]
     Active Substance: METFORMIN HYDROCHLORIDE
     Indication: BLOOD GLUCOSE INCREASED
     Dosage: HALF MORNING AND HALF HALF DAY, UNIT DOSE: 850 MG
     Dates: start: 20170501
  4. BLOKIUM 50 MG COMPRIMIDOS, 60 COMPRIMIDOS [Concomitant]
     Indication: HYPERTENSION
     Dosage: HALF MORNING AND HALF DINNER
     Dates: start: 20130104
  5. ZYPREXA [Concomitant]
     Active Substance: OLANZAPINE
     Indication: BIPOLAR DISORDER
     Dosage: 5 MILLIGRAM DAILY; 5 MG ONCE A DAY AT NIGHT
     Dates: start: 20190601
  6. CLOPIDOGREL STADA 75 MG COMPRIMIDOS RECUBIERTOS CON PELICULA EFG, 28 C [Concomitant]
     Active Substance: CLOPIDOGREL BESILATE
     Indication: HYPERTENSION
     Dosage: AVERAGE IN THE MORNING, UNIT DOSE: 37.5 MG
     Dates: start: 20130501
  7. DEPAKINE CRONO 500 MG COMPRIMIDOS DE LIBERACION PROLONGADA , 100 COMPR [Suspect]
     Active Substance: VALPROATE SODIUM
     Indication: BIPOLAR DISORDER
     Dosage: 1 GRAM DAILY; 1000 MG ONCE A DAY
     Route: 002
     Dates: start: 20190914

REACTIONS (13)
  - Joint swelling [Not Recovered/Not Resolved]
  - Tinnitus [Not Recovered/Not Resolved]
  - Fatigue [Not Recovered/Not Resolved]
  - Asthenia [Not Recovered/Not Resolved]
  - Urinary incontinence [Not Recovered/Not Resolved]
  - Decreased appetite [Not Recovered/Not Resolved]
  - Somnolence [Not Recovered/Not Resolved]
  - Pyrexia [Not Recovered/Not Resolved]
  - Seizure [Not Recovered/Not Resolved]
  - Swelling face [Recovering/Resolving]
  - Tremor [Not Recovered/Not Resolved]
  - Yellow skin [Not Recovered/Not Resolved]
  - Skin discolouration [Not Recovered/Not Resolved]

NARRATIVE: CASE EVENT DATE: 20200522
